FAERS Safety Report 4566517-4 (Version None)
Quarter: 2005Q1

REPORT INFORMATION
  Report Type: 
  Country: None (occurrence: None)
  Receive Date: 20050128
  Receipt Date: 20040121
  Transmission Date: 20050727
  Serious: Yes (Life-Threatening, Hospitalization, Other)
  Sender: FDA-Public Use
  Company Number: 05USA0022

PATIENT
  Sex: Male

DRUGS (2)
  1. AGGRASTAT [Suspect]
     Indication: ACUTE CORONARY SYNDROME
     Dosage: 0.15 MG/KG/MIN
     Dates: start: 20031202, end: 20031202
  2. LORTAB [Concomitant]

REACTIONS (4)
  - ANAPHYLACTIC REACTION [None]
  - CHILLS [None]
  - PLATELET COUNT DECREASED [None]
  - PYREXIA [None]
